FAERS Safety Report 25362408 (Version 1)
Quarter: 2025Q2

REPORT INFORMATION
  Report Type: Spontaneous
  Country: TR (occurrence: TR)
  Receive Date: 20250527
  Receipt Date: 20250527
  Transmission Date: 20250717
  Serious: Yes (Other)
  Sender: SANDOZ
  Company Number: TR-002147023-NVSC2025TR030381

PATIENT

DRUGS (1)
  1. RITALIN [Suspect]
     Active Substance: METHYLPHENIDATE HYDROCHLORIDE
     Indication: Product used for unknown indication
     Route: 065

REACTIONS (6)
  - Withdrawal syndrome [Unknown]
  - Caffeine dependence [Unknown]
  - Nicotine dependence [Unknown]
  - Psychiatric symptom [Unknown]
  - Emotional disorder [Unknown]
  - Psychomotor hyperactivity [Unknown]
